FAERS Safety Report 8741209 (Version 2)
Quarter: 2014Q2

REPORT INFORMATION
  Report Type: Spontaneous
  Country: US (occurrence: US)
  Receive Date: 20120824
  Receipt Date: 20140519
  Transmission Date: 20141212
  Serious: No
  Sender: FDA-Public Use
  Company Number: US-ASTRAZENECA-2012SE03672

PATIENT
  Age: 88 Year
  Sex: Male
  Weight: 81.6 kg

DRUGS (1)
  1. SYMBICORT [Suspect]
     Indication: DYSPNOEA
     Dosage: 2 PUFFS BID
     Route: 055
     Dates: start: 2012

REACTIONS (5)
  - Malaise [Unknown]
  - Rhinorrhoea [Unknown]
  - Off label use [Unknown]
  - Intentional product misuse [Unknown]
  - Drug dose omission [Unknown]
